FAERS Safety Report 8335962-3 (Version None)
Quarter: 2012Q2

REPORT INFORMATION
  Report Type: 
  Country: None (occurrence: None)
  Receive Date: 20120504
  Receipt Date: 20120430
  Transmission Date: 20120825
  Serious: No
  Sender: FDA-Public Use
  Company Number: US-PFIZER INC-2012106666

PATIENT
  Sex: Female
  Weight: 59.864 kg

DRUGS (3)
  1. EFFEXOR XR [Suspect]
     Dosage: 75 MG, DAILY
     Route: 048
  2. EFFEXOR XR [Suspect]
     Indication: ANXIETY
     Dosage: 75 MG, 2X/DAY
     Route: 048
  3. EFFEXOR XR [Suspect]
     Dosage: 150 MG, DAILY
     Route: 048
     Dates: start: 20120401

REACTIONS (4)
  - SOMNOLENCE [None]
  - VITAMIN B COMPLEX DEFICIENCY [None]
  - DRUG INTOLERANCE [None]
  - FATIGUE [None]
